FAERS Safety Report 24988164 (Version 8)
Quarter: 2025Q4

REPORT INFORMATION
  Report Type: Report from Study
  Country: EU (occurrence: EU)
  Receive Date: 20250220
  Receipt Date: 20251221
  Transmission Date: 20260117
  Serious: Yes (Death, Hospitalization, Other)
  Sender: ABBVIE
  Company Number: EU-ABBVIE-6025984

PATIENT
  Age: 56 Year
  Sex: Male

DRUGS (4)
  1. CARBIDOPA\LEVODOPA [Suspect]
     Active Substance: CARBIDOPA\LEVODOPA
     Indication: Parkinson^s disease
     Dosage: MD: 5.0 ML; CRT: 3.2 ML; ED: 1.0 ML
     Route: 050
  2. CARBIDOPA\LEVODOPA [Suspect]
     Active Substance: CARBIDOPA\LEVODOPA
     Dosage: MD: 5.0ML; CRT: 3.2ML/H; ED: 1.5ML, FIRST ADMIN DATE: 2024
     Route: 050
  3. CARBIDOPA\LEVODOPA [Suspect]
     Active Substance: CARBIDOPA\LEVODOPA
     Dosage: MD: 5.0ML; CRT: 2.8ML/H; ED: 1.5ML, LAST ADMIN DATE: 2024
     Route: 050
     Dates: start: 20241023
  4. CARBIDOPA\LEVODOPA [Suspect]
     Active Substance: CARBIDOPA\LEVODOPA
     Dosage: MD 5.0ML; CRD 3.2ML/H; ED 1.1ML, 16 HOURS
     Route: 050

REACTIONS (22)
  - Organ failure [Fatal]
  - Muscle spasms [Not Recovered/Not Resolved]
  - Pneumonia aspiration [Recovering/Resolving]
  - COVID-19 pneumonia [Recovering/Resolving]
  - Enteral nutrition [Not Recovered/Not Resolved]
  - Speech disorder [Not Recovered/Not Resolved]
  - On and off phenomenon [Not Recovered/Not Resolved]
  - Malaise [Not Recovered/Not Resolved]
  - Musculoskeletal stiffness [Not Recovered/Not Resolved]
  - Tracheostomy [Recovering/Resolving]
  - Dyspnoea [Unknown]
  - Pneumonia [Unknown]
  - Orthostatic intolerance [Unknown]
  - Sleep apnoea syndrome [Unknown]
  - Bladder disorder [Unknown]
  - Wheelchair user [Not Recovered/Not Resolved]
  - Diabetes mellitus [Unknown]
  - Anal incontinence [Unknown]
  - Constipation [Unknown]
  - Peripheral sensorimotor neuropathy [Unknown]
  - General physical health deterioration [Not Recovered/Not Resolved]
  - Pulmonary embolism [Unknown]

NARRATIVE: CASE EVENT DATE: 20240101
